FAERS Safety Report 5386786-0 (Version None)
Quarter: 2007Q3

REPORT INFORMATION
  Report Type: 
  Country: None (occurrence: None)
  Receive Date: 20070713
  Receipt Date: 20070702
  Transmission Date: 20080115
  Serious: Yes (Other)
  Sender: FDA-Public Use
  Company Number: US-PFIZER INC-2006121077

PATIENT
  Sex: Female
  Weight: 97.5 kg

DRUGS (10)
  1. CELEBREX [Suspect]
     Indication: ARTHRITIS
     Route: 048
  2. CELEBREX [Suspect]
     Indication: PAIN
  3. BEXTRA [Suspect]
     Route: 048
  4. VIOXX [Suspect]
     Indication: ARTHRITIS
     Route: 048
     Dates: start: 19990501
  5. VIOXX [Suspect]
     Indication: PAIN
  6. HUMULIN N [Concomitant]
  7. ENALAPRIL MALEATE [Concomitant]
  8. FOSINOPRIL SODIUM [Concomitant]
     Indication: CARDIAC DISORDER
     Dates: start: 20010101
  9. NORVASC [Concomitant]
     Indication: CARDIAC DISORDER
     Dates: start: 20010101
  10. PLAVIX [Concomitant]
     Indication: ANTICOAGULANT THERAPY

REACTIONS (2)
  - CARDIOVASCULAR DISORDER [None]
  - ISCHAEMIC STROKE [None]
